FAERS Safety Report 6727199-6 (Version None)
Quarter: 2010Q2

REPORT INFORMATION
  Report Type: 
  Country: None (occurrence: None)
  Receive Date: 20100517
  Receipt Date: 20100505
  Transmission Date: 20101027
  Serious: Yes (Hospitalization)
  Sender: FDA-Public Use
  Company Number: CN-JNJFOC-20100502039

PATIENT
  Age: 14 Year
  Sex: Female
  Weight: 37.5 kg

DRUGS (1)
  1. TYLENOL COLD [Suspect]
     Indication: NASOPHARYNGITIS

REACTIONS (2)
  - OVERDOSE [None]
  - VOMITING [None]
